FAERS Safety Report 7359595-0 (Version None)
Quarter: 2011Q1

REPORT INFORMATION
  Report Type: 
  Country: None (occurrence: None)
  Receive Date: 20110317
  Receipt Date: 20100226
  Transmission Date: 20110831
  Serious: No
  Sender: FDA-Public Use
  Company Number: US-PFIZER INC-2010005652

PATIENT
  Sex: Female
  Weight: 115 kg

DRUGS (6)
  1. ADVAIR DISKUS 100/50 [Concomitant]
     Indication: DYSPNOEA
     Dosage: UNK
     Route: 055
  2. SALBUTAMOL [Concomitant]
     Dosage: UNK
     Route: 055
  3. AMLODIPINE BESYLATE [Suspect]
     Indication: HYPERTENSION
     Dosage: 5 MG, 1X/DAY
     Route: 048
  4. SPIRIVA [Concomitant]
     Indication: DYSPNOEA
     Dosage: UNK
     Route: 055
  5. GLYBURIDE [Concomitant]
     Indication: DIABETES MELLITUS
     Dosage: UNK
  6. LISINOPRIL [Concomitant]
     Dosage: UNK

REACTIONS (4)
  - ORAL DISCOMFORT [None]
  - PAIN [None]
  - THROAT IRRITATION [None]
  - FOREIGN BODY [None]
